FAERS Safety Report 19417262 (Version 1)
Quarter: 2021Q2

REPORT INFORMATION
  Report Type: Spontaneous
  Country: US (occurrence: US)
  Receive Date: 20210615
  Receipt Date: 20210615
  Transmission Date: 20210717
  Serious: Yes (Other)
  Sender: FDA-Public Use
  Company Number: None

PATIENT
  Age: 69 Year
  Sex: Female
  Weight: 72.6 kg

DRUGS (4)
  1. IMDEVIMAB. [Suspect]
     Active Substance: IMDEVIMAB
     Indication: COVID-19 PNEUMONIA
     Dosage: ?          OTHER FREQUENCY:ONCE;?
     Route: 042
     Dates: start: 20210610, end: 20210610
  2. SODIUM CHLORIDE 0.9% 30 ML [Concomitant]
     Dates: start: 20210610, end: 20210610
  3. ACETAMINOPHEN 650 MG ORAL [Concomitant]
     Dates: start: 20210610, end: 20210610
  4. CASIRIVIMAB. [Suspect]
     Active Substance: CASIRIVIMAB
     Indication: COVID-19 PNEUMONIA
     Dosage: ?          OTHER FREQUENCY:ONCE;?
     Route: 042
     Dates: start: 20210610, end: 20210610

REACTIONS (7)
  - Dyspnoea [None]
  - SARS-CoV-2 test negative [None]
  - Chest pain [None]
  - Tachycardia [None]
  - Fibrin D dimer increased [None]
  - Pyrexia [None]
  - Product use issue [None]

NARRATIVE: CASE EVENT DATE: 20210610
